FAERS Safety Report 22148573 (Version 1)
Quarter: 2023Q1

REPORT INFORMATION
  Report Type: Report from Study
  Country: US (occurrence: US)
  Receive Date: 20230328
  Receipt Date: 20230328
  Transmission Date: 20230417
  Serious: Yes (Other)
  Sender: FDA-Public Use
  Company Number: US-BAUSCH-BL-2023-004833

PATIENT
  Age: 44 Year
  Sex: Female

DRUGS (1)
  1. XIFAXAN [Suspect]
     Active Substance: RIFAXIMIN
     Indication: Product used for unknown indication
     Route: 065
     Dates: start: 20230120

REACTIONS (4)
  - Peripheral swelling [Unknown]
  - Intra-abdominal fluid collection [Unknown]
  - Dyspnoea exertional [Unknown]
  - Arthralgia [Unknown]

NARRATIVE: CASE EVENT DATE: 20230322
